FAERS Safety Report 19384344 (Version 1)
Quarter: 2021Q2

REPORT INFORMATION
  Report Type: Other
  Country: PT (occurrence: PT)
  Receive Date: 20210608
  Receipt Date: 20210608
  Transmission Date: 20210717
  Serious: Yes (Other)
  Sender: FDA-Public Use
  Company Number: PT-CELLTRION INC.-2021PT001915

PATIENT

DRUGS (4)
  1. PERJETA [Suspect]
     Active Substance: PERTUZUMAB
     Indication: HER2 POSITIVE BREAST CANCER
     Dosage: UNK
     Dates: start: 20200608, end: 20200911
  2. TRASTUZUMAB (UNKNOWN) [Suspect]
     Active Substance: TRASTUZUMAB
     Indication: INVASIVE DUCTAL BREAST CARCINOMA
     Dosage: 414 MG
     Route: 041
     Dates: start: 20200608, end: 20200911
  3. HERZUMA [Suspect]
     Active Substance: TRASTUZUMAB-PKRB
     Indication: HER2 POSITIVE BREAST CANCER
     Dosage: UNK
  4. PERJETA [Suspect]
     Active Substance: PERTUZUMAB
     Indication: INVASIVE DUCTAL BREAST CARCINOMA
     Dosage: 420 MG, EVERY 3 WEEKS
     Route: 042
     Dates: start: 20200608, end: 20200911

REACTIONS (5)
  - Left ventricular dysfunction [Recovered/Resolved with Sequelae]
  - Cardiotoxicity [Recovered/Resolved with Sequelae]
  - Ventricular dyssynchrony [Not Recovered/Not Resolved]
  - Pleural effusion [Recovered/Resolved with Sequelae]
  - Ventricular hypokinesia [Not Recovered/Not Resolved]

NARRATIVE: CASE EVENT DATE: 20200914
